FAERS Safety Report 6758994-5 (Version None)
Quarter: 2010Q2

REPORT INFORMATION
  Report Type: 
  Country: None (occurrence: None)
  Receive Date: 20100603
  Receipt Date: 20100520
  Transmission Date: 20101027
  Serious: Yes (Hospitalization)
  Sender: FDA-Public Use
  Company Number: 1000014129

PATIENT
  Age: 86 Year
  Sex: Male
  Weight: 59 kg

DRUGS (7)
  1. MEMANTINE HCL [Suspect]
     Indication: DEMENTIA
     Dosage: 5 MG (5 MG, 1 IN 1 D), ORAL
     Route: 048
     Dates: start: 20100327, end: 20100331
  2. CIRCADIN [Suspect]
     Indication: SLEEP DISORDER
     Dosage: 1 DOSAGE FORMS (1 DOSAGE FORMS, 1 IN 1 D), ORAL
     Route: 048
  3. RISPERDAL [Suspect]
     Indication: DELUSION
     Dosage: 0.5 MG (0.25 MG, 2 IN 1 D)
  4. CORDARONE [Concomitant]
  5. KARDEGIC [Concomitant]
  6. BISOPROLOL FUMARATE [Concomitant]
  7. ZYLORIC [Concomitant]

REACTIONS (7)
  - ARTHROPATHY [None]
  - FALL [None]
  - GAIT DISTURBANCE [None]
  - GENERAL PHYSICAL HEALTH DETERIORATION [None]
  - PSYCHOMOTOR RETARDATION [None]
  - SUBDURAL HAEMATOMA [None]
  - TRAUMATIC BRAIN INJURY [None]
